FAERS Safety Report 18181429 (Version 1)
Quarter: 2020Q3

REPORT INFORMATION
  Report Type: Spontaneous
  Country: FR (occurrence: FR)
  Receive Date: 20200821
  Receipt Date: 20200821
  Transmission Date: 20201103
  Serious: Yes (Life-Threatening, Hospitalization, Other)
  Sender: FDA-Public Use
  Company Number: FR-PFIZER INC-2020325186

PATIENT
  Age: 82 Year
  Sex: Female
  Weight: 80 kg

DRUGS (4)
  1. ORBENINE [Interacting]
     Active Substance: CLOXACILLIN SODIUM
     Indication: ENDOCARDITIS
     Dosage: 1800 MG, 1X/DAY
     Route: 042
     Dates: start: 20200704, end: 20200706
  2. GENTAMICINE PANPHARMA [Interacting]
     Active Substance: GENTAMICIN
     Indication: ENDOCARDITIS BACTERIAL
     Dosage: 180 MG, 1X/DAY
     Route: 042
     Dates: start: 20200704, end: 20200705
  3. DALACINE [Suspect]
     Active Substance: CLINDAMYCIN
     Indication: ENDOCARDITIS
     Dosage: 1800 MG, 1X/DAY
     Route: 042
     Dates: start: 20200704, end: 20200706
  4. BACTRIM [Interacting]
     Active Substance: SULFAMETHOXAZOLE\TRIMETHOPRIM
     Indication: ENDOCARDITIS
     Dosage: 2500 MG, 1X/DAY
     Route: 041
     Dates: start: 20200705, end: 20200706

REACTIONS (2)
  - Drug interaction [Recovered/Resolved]
  - Acute kidney injury [Recovered/Resolved]

NARRATIVE: CASE EVENT DATE: 20200706
